FAERS Safety Report 7190432-3 (Version None)
Quarter: 2010Q4

REPORT INFORMATION
  Report Type: 
  Country: None (occurrence: None)
  Receive Date: 20101223
  Receipt Date: 20101215
  Transmission Date: 20110411
  Serious: Yes (Hospitalization)
  Sender: FDA-Public Use
  Company Number: US-ELI_LILLY_AND_COMPANY-US201012004010

PATIENT
  Sex: Male
  Weight: 99.773 kg

DRUGS (5)
  1. BYETTA [Suspect]
     Indication: TYPE 1 DIABETES MELLITUS
     Dosage: 5 UG, UNK
  2. BYETTA [Suspect]
     Dosage: 10 UG, UNK
  3. BYETTA [Suspect]
     Dosage: 5 UG, UNK
  4. GLIPIZIDE [Concomitant]
     Indication: TYPE 1 DIABETES MELLITUS
     Route: 048
  5. METFORMIN [Concomitant]
     Indication: TYPE 1 DIABETES MELLITUS
     Route: 048

REACTIONS (4)
  - BLOOD GLUCOSE FLUCTUATION [None]
  - NAUSEA [None]
  - ROTATOR CUFF SYNDROME [None]
  - VOMITING [None]
